FAERS Safety Report 9973419 (Version 3)
Quarter: 2014Q2

REPORT INFORMATION
  Report Type: Spontaneous
  Country: US (occurrence: US)
  Receive Date: 20140306
  Receipt Date: 20140630
  Transmission Date: 20141212
  Serious: Yes (Other)
  Sender: FDA-Public Use
  Company Number: US-PFIZER INC-2014061795

PATIENT
  Age: 74 Year
  Sex: Female

DRUGS (8)
  1. LIPITOR [Suspect]
     Indication: LOW DENSITY LIPOPROTEIN INCREASED
     Dosage: 10 MG, DAILY
     Route: 048
     Dates: start: 1998
  2. LIPITOR [Suspect]
     Dosage: 40 MG, DAILY
     Route: 048
     Dates: end: 2011
  3. ATORVASTATIN [Suspect]
     Indication: BLOOD CHOLESTEROL
     Dosage: 40 MG, DAILY
     Dates: start: 201111
  4. CALCIUM W/VITAMIN D [Concomitant]
     Indication: VITAMIN D DEFICIENCY
     Dosage: 600 MG, 2X/DAY
     Dates: start: 2011
  5. LISINOPRIL [Concomitant]
     Indication: HYPERTENSION
     Dosage: 5 MG, UNK
     Dates: start: 2009
  6. HYDROCHLOROTHIAZIDE [Concomitant]
     Dosage: 25 MG, UNK
     Dates: start: 2009
  7. PROTONIX DR [Concomitant]
     Indication: GASTROOESOPHAGEAL REFLUX DISEASE
     Dosage: 40 MG, UNK
     Dates: start: 2009
  8. NORCO [Concomitant]
     Indication: PAIN IN EXTREMITY
     Dosage: 10-325 MG ONLY AS NEEDED
     Dates: start: 2008

REACTIONS (1)
  - Type 2 diabetes mellitus [Unknown]
